FAERS Safety Report 19843434 (Version 1)
Quarter: 2021Q3

REPORT INFORMATION
  Report Type: Spontaneous
  Country: BE (occurrence: BE)
  Receive Date: 20210917
  Receipt Date: 20210917
  Transmission Date: 20211014
  Serious: Yes (Other)
  Sender: FDA-Public Use
  Company Number: BE-ABBVIE-21K-013-4079569-00

PATIENT
  Age: 71 Year
  Sex: Female
  Weight: 68 kg

DRUGS (5)
  1. XEPLION [Concomitant]
     Active Substance: PALIPERIDONE PALMITATE
     Indication: PARANOIA
     Dates: start: 20160504
  2. COVERSYL AM [Concomitant]
     Active Substance: AMLODIPINE BESYLATE\PERINDOPRIL ERBUMINE
     Indication: HYPERTENSION
     Dates: start: 20160823
  3. DEPAKINE CHRONO [Suspect]
     Active Substance: VALPROATE SODIUM
     Indication: PRODUCT USED FOR UNKNOWN INDICATION
     Dosage: 500
     Route: 048
  4. KEMADRIN [Concomitant]
     Active Substance: PROCYCLIDINE HYDROCHLORIDE
     Indication: MUSCLE SPASTICITY
  5. ALPRAZOLAM. [Concomitant]
     Active Substance: ALPRAZOLAM
     Indication: ANXIETY

REACTIONS (9)
  - General physical health deterioration [Recovered/Resolved]
  - Weight increased [Recovered/Resolved]
  - Oedema peripheral [Recovered/Resolved]
  - Drug interaction [Unknown]
  - Fatigue [Recovered/Resolved]
  - Paranoia [Recovered/Resolved]
  - Neglect of personal appearance [Recovered/Resolved]
  - Gait disturbance [Recovered/Resolved]
  - Tremor [Recovered/Resolved]

NARRATIVE: CASE EVENT DATE: 201804
